FAERS Safety Report 7427711-8 (Version None)
Quarter: 2011Q2

REPORT INFORMATION
  Report Type: 
  Country: None (occurrence: None)
  Receive Date: 20110411
  Receipt Date: 20110331
  Transmission Date: 20111010
  Serious: Yes (Hospitalization)
  Sender: FDA-Public Use
  Company Number: UTC-005738

PATIENT
  Age: 55 Year
  Sex: Female
  Weight: 79 kg

DRUGS (5)
  1. REVATIO [Concomitant]
  2. REMODULIN [Suspect]
     Indication: PULMONARY ARTERIAL HYPERTENSION
     Dosage: 28.8 UG/KG (0.02 UG/KG,1 IN 1 MIN), SUBCUTANEOUS
     Route: 058
     Dates: start: 20100403
  3. TRACLEER (BOSENTAN)` [Concomitant]
  4. DIURETICS (DIURETICS) [Concomitant]
  5. COUMADIN [Concomitant]

REACTIONS (1)
  - PALPITATIONS [None]
